FAERS Safety Report 20043731 (Version 1)
Quarter: 2021Q4

REPORT INFORMATION
  Report Type: Spontaneous
  Country: DE (occurrence: DE)
  Receive Date: 20211108
  Receipt Date: 20211108
  Transmission Date: 20220303
  Serious: Yes (Hospitalization, Other)
  Sender: FDA-Public Use
  Company Number: DE-ASTELLAS-2021US042322

PATIENT
  Age: 52 Year
  Sex: Female

DRUGS (6)
  1. TACROLIMUS [Suspect]
     Active Substance: TACROLIMUS
     Indication: Liver transplant
     Dosage: UNK UNK, UNKNOWN FREQ.
     Route: 065
  2. ISAVUCONAZOLE [Suspect]
     Active Substance: ISAVUCONAZOLE
     Indication: Systemic candida
     Route: 042
  3. ISAVUCONAZOLE [Suspect]
     Active Substance: ISAVUCONAZOLE
     Route: 042
  4. ISAVUCONAZOLE [Suspect]
     Active Substance: ISAVUCONAZOLE
     Route: 065
  5. ISAVUCONAZOLE [Suspect]
     Active Substance: ISAVUCONAZOLE
     Route: 065
  6. MYCOPHENOLATE MOFETIL [Concomitant]
     Active Substance: MYCOPHENOLATE MOFETIL
     Indication: Liver transplant
     Dosage: UNK UNK, UNKNOWN FREQ.
     Route: 065

REACTIONS (5)
  - Systemic candida [Recovered/Resolved]
  - Candida sepsis [Recovered/Resolved]
  - Enterococcal infection [Unknown]
  - Product use in unapproved indication [Unknown]
  - Off label use [Unknown]
